FAERS Safety Report 15644851 (Version 1)
Quarter: 2018Q4

REPORT INFORMATION
  Report Type: Spontaneous
  Country: BE (occurrence: BE)
  Receive Date: 20181121
  Receipt Date: 20181121
  Transmission Date: 20190205
  Serious: Yes (Hospitalization, Other)
  Sender: FDA-Public Use
  Company Number: BE-IMPAX LABORATORIES, LLC-2018-IPXL-03754

PATIENT
  Age: 17 Year
  Sex: Male
  Weight: 75 kg

DRUGS (1)
  1. CHLOROQUINE PHOSPHATE. [Suspect]
     Active Substance: CHLOROQUINE PHOSPHATE
     Indication: SUICIDE ATTEMPT
     Dosage: 8 GRAM, SINGLE
     Route: 048

REACTIONS (8)
  - Coma [Recovered/Resolved]
  - Suicide attempt [Recovered/Resolved]
  - Cardiac arrest [Recovered/Resolved]
  - Generalised tonic-clonic seizure [Not Recovered/Not Resolved]
  - Cardiogenic shock [Recovered/Resolved]
  - Brain hypoxia [Not Recovered/Not Resolved]
  - Pulseless electrical activity [Recovered/Resolved]
  - Intentional overdose [Recovered/Resolved]
